FAERS Safety Report 10523967 (Version 1)
Quarter: 2014Q4

REPORT INFORMATION
  Report Type: Spontaneous
  Country: US (occurrence: None)
  Receive Date: 20141015
  Receipt Date: 20141015
  Transmission Date: 20150528
  Serious: Yes (Other)
  Sender: FDA-Public Use
  Company Number: None

PATIENT
  Age: 51 Year
  Sex: Female
  Weight: 60.78 kg

DRUGS (1)
  1. LEVAQUIN [Suspect]
     Active Substance: LEVOFLOXACIN
     Indication: BACTERIAL INFECTION
     Dosage: 1, ONCE DAILY, TAKEN BY MOUTH
     Route: 048

REACTIONS (11)
  - Arthralgia [None]
  - Anorectal disorder [None]
  - Drug hypersensitivity [None]
  - Headache [None]
  - Visual acuity reduced [None]
  - Dyspnoea [None]
  - Abdominal distension [None]
  - Pruritus [None]
  - Tendon pain [None]
  - Gastrointestinal disorder [None]
  - Musculoskeletal pain [None]

NARRATIVE: CASE EVENT DATE: 20140605
